FAERS Safety Report 10927545 (Version 2)
Quarter: 2015Q3

REPORT INFORMATION
  Report Type: Spontaneous
  Country: US (occurrence: US)
  Receive Date: 20150318
  Receipt Date: 20150826
  Transmission Date: 20151125
  Serious: Yes (Death)
  Sender: FDA-Public Use
  Company Number: US-BAXTER-2015BAX013377

PATIENT
  Age: 49 Year
  Sex: Male

DRUGS (3)
  1. VANCOMYCIN INJECTION, USP [Suspect]
     Active Substance: VANCOMYCIN
     Indication: ENDOCARDITIS
     Route: 042
  2. GENTAMICIN SULFATE IN 0.9% SODIUM CHLORIDE INJECTION [Suspect]
     Active Substance: GENTAMICIN SULFATE
     Indication: ENDOCARDITIS
     Route: 042
  3. CEFEPIME [Suspect]
     Active Substance: CEFEPIME HYDROCHLORIDE
     Indication: ENDOCARDITIS
     Route: 042

REACTIONS (5)
  - Ruptured cerebral aneurysm [Fatal]
  - Cerebral haemorrhage [Fatal]
  - Haemorrhage [Fatal]
  - Brain herniation [Fatal]
  - Subarachnoid haemorrhage [Fatal]
